FAERS Safety Report 5933970-0 (Version None)
Quarter: 2008Q4

REPORT INFORMATION
  Report Type: 
  Country: None (occurrence: None)
  Receive Date: 20081028
  Receipt Date: 20081028
  Transmission Date: 20090506
  Serious: Yes (Other)
  Sender: FDA-Public Use
  Company Number: None

PATIENT
  Age: 22 Year
  Sex: Male
  Weight: 79.3795 kg

DRUGS (2)
  1. HALOPERIDOL [Suspect]
     Indication: SCHIZOPHRENIA, PARANOID TYPE
     Dosage: 10MG EVERYDAY PO
     Route: 048
     Dates: start: 20070301, end: 20070920
  2. COGENTIN [Suspect]
     Indication: SCHIZOPHRENIA, PARANOID TYPE
     Dosage: 5MG EVERYDAY PO
     Route: 048
     Dates: start: 20070301, end: 20070920

REACTIONS (7)
  - CAFFEINE CONSUMPTION [None]
  - DEHYDRATION [None]
  - DYSPNOEA [None]
  - ERECTILE DYSFUNCTION [None]
  - IMPAIRED WORK ABILITY [None]
  - MENTAL IMPAIRMENT [None]
  - MUSCLE TWITCHING [None]
